FAERS Safety Report 4539194-6 (Version None)
Quarter: 2004Q4

REPORT INFORMATION
  Report Type: 
  Country: None (occurrence: None)
  Receive Date: 20041222
  Receipt Date: 20041216
  Transmission Date: 20050328
  Serious: Yes (Hospitalization)
  Sender: FDA-Public Use
  Company Number: A044-002-005373

PATIENT
  Age: 85 Year
  Sex: Female
  Weight: 42 kg

DRUGS (7)
  1. ARICEPT [Suspect]
     Indication: DELUSION
     Dosage: 5 MG, 1 IN 1 D, ORAL
     Route: 048
     Dates: start: 20040707, end: 20040412
  2. ARICEPT [Suspect]
     Indication: SENILE DEMENTIA
     Dosage: 5 MG, 1 IN 1 D, ORAL
     Route: 048
     Dates: start: 20040707, end: 20040412
  3. THIORIDAZINE (THIRIDAZINE HYDROCHLORIDE) [Suspect]
     Dosage: 20 DROPS, ORAL
     Route: 048
     Dates: start: 20040407, end: 20040412
  4. NITRAZEPAM [Suspect]
     Dosage: 5 MG, ORAL
     Route: 048
     Dates: end: 20040412
  5. PAROXETINE (PAROXETINE HYDROCHLORIDE) [Suspect]
     Indication: DYSTHYMIC DISORDER
     Dosage: 30 MG, ORAL
     Route: 048
     Dates: start: 20040215, end: 20040415
  6. SPIRONOLACTONE [Concomitant]
  7. FUROSEMIDE [Concomitant]

REACTIONS (2)
  - AGITATION [None]
  - DYSKINESIA [None]
